FAERS Safety Report 4373658-3 (Version None)
Quarter: 2004Q1

REPORT INFORMATION
  Report Type: 
  Country: None (occurrence: None)
  Receive Date: 20040305
  Receipt Date: 20031126
  Transmission Date: 20041129
  Serious: Yes (Other)
  Sender: FDA-Public Use
  Company Number: 2003UW15692

PATIENT
  Age: 75 Year
  Sex: Female
  Weight: 48.5349 kg

DRUGS (6)
  1. CRESTOR [Suspect]
     Indication: BLOOD CHOLESTEROL INCREASED
     Dosage: 10 MG PO
     Route: 048
     Dates: start: 20031101
  2. URICED K [Concomitant]
  3. BIOFLAVONOIDS [Concomitant]
  4. PREMARIN [Concomitant]
  5. METOPROLOL TARTRATE [Concomitant]
  6. MAXZIDE [Concomitant]

REACTIONS (4)
  - BACK PAIN [None]
  - CONSTIPATION [None]
  - FLUID RETENTION [None]
  - WEIGHT INCREASED [None]
